FAERS Safety Report 8936778 (Version 1)
Quarter: 2012Q4

REPORT INFORMATION
  Report Type: Report from Study
  Country: DE (occurrence: DE)
  Receive Date: 20121130
  Receipt Date: 20121130
  Transmission Date: 20130627
  Serious: Yes (Hospitalization)
  Sender: FDA-Public Use
  Company Number: DE-GENZYME-CAMP-1002362

PATIENT
  Age: 49 Year
  Sex: Female
  Weight: 60 kg

DRUGS (17)
  1. METHYLPREDNISOLONE [Concomitant]
     Indication: MULTIPLE SCLEROSIS
     Dosage: 1 g, qd
     Route: 042
     Dates: start: 20110921, end: 20110923
  2. FAMPRIDINE [Concomitant]
     Indication: WALKING DISABILITY
     Dosage: 10 mg, bid
     Route: 048
     Dates: start: 20120110
  3. LYRICA [Concomitant]
     Indication: PAIN PROPHYLAXIS
     Dosage: 75 mg, bid
     Dates: start: 20120711
  4. CITALOPRAM [Concomitant]
     Indication: DEPRESSION
     Dosage: 10 mg, qd
     Route: 048
     Dates: start: 20120715
  5. METOPROLOL [Concomitant]
     Indication: TACHYCARDIA
     Dosage: 47.5 mg, bid
     Route: 048
     Dates: start: 20120731
  6. FAVISTAN [Concomitant]
     Indication: PRODUCT USED FOR UNKNOWN INDICATION
  7. THIAMAZOL [Concomitant]
     Indication: HYPERTHYROIDISM
     Dosage: 5 mg, bid
     Route: 048
     Dates: start: 20120815, end: 20121005
  8. THIAMAZOL [Concomitant]
     Indication: HYPERTHYROIDISM
     Dosage: 10 mg, bid
     Route: 048
     Dates: start: 20120806, end: 20120814
  9. THIAMAZOL [Concomitant]
     Indication: HYPERTHYROIDISM
     Dosage: 15 mg, bid
     Route: 048
     Dates: start: 20121006, end: 20121018
  10. THIAMAZOL [Concomitant]
     Indication: HYPERTHYROIDISM
     Dosage: UNK
     Route: 048
     Dates: start: 20121019, end: 20121102
  11. THIAMAZOL [Concomitant]
     Indication: HYPERTHYROIDISM
     Dosage: 5 mg
     Route: 048
     Dates: start: 20121103, end: 20121105
  12. THIAMAZOL [Concomitant]
     Indication: HYPERTHYROIDISM
     Dosage: 5 mg, qd
     Route: 048
     Dates: start: 20121106
  13. ALEMTUZUMAB [Suspect]
     Indication: MULTIPLE SCLEROSIS
     Dosage: 12 mg, qd
     Route: 065
     Dates: start: 20110921, end: 20110923
  14. ALEMTUZUMAB [Suspect]
     Dosage: 12 mg, qd
     Route: 065
     Dates: start: 20090602, end: 20090606
  15. ALEMTUZUMAB [Suspect]
     Dosage: 12 mg, qd
     Route: 065
     Dates: start: 20100608, end: 20100610
  16. METHYLPREDNISOLONE [Concomitant]
     Indication: MULTIPLE SCLEROSIS
     Dosage: 1 g, qd
     Route: 042
     Dates: start: 20090602, end: 20090604
  17. METHYLPREDNISOLONE [Concomitant]
     Indication: MULTIPLE SCLEROSIS
     Dosage: 1 g, qd
     Route: 042
     Dates: start: 20100608, end: 20100610

REACTIONS (1)
  - Diarrhoea [Recovered/Resolved]
